FAERS Safety Report 9783230 (Version 1)
Quarter: 2013Q4

REPORT INFORMATION
  Report Type: Spontaneous
  Country: US (occurrence: None)
  Receive Date: 20131223
  Receipt Date: 20131223
  Transmission Date: 20140711
  Serious: No
  Sender: FDA-Public Use
  Company Number: EUS-2012-00059

PATIENT
  Sex: Female

DRUGS (9)
  1. ERWINASE (ASPARAGINASE) [Suspect]
     Indication: ACUTE LYMPHOCYTIC LEUKAEMIA
     Route: 030
     Dates: start: 20110415, end: 20110516
  2. CYCLOPHOSPHAMIDE (CYCLOPHOSPHAMIDE) [Concomitant]
  3. CYTARABINE (CYTARABINE) [Concomitant]
  4. MERCAPTOPURINE (MERCAPTOPURINE) [Concomitant]
  5. VINCRISTINE (VINCRISTINE) [Concomitant]
  6. METHOTREXATE (METHOTREXATE) [Concomitant]
  7. DEXAMETHASONE (DEXAMETHASONE) [Concomitant]
  8. DOXORUBICINE (DOXORUBICIN HYDROCHLORIDE) [Concomitant]
  9. THIOGUANINE (TIOGUANINE) [Concomitant]

REACTIONS (1)
  - Hypersensitivity [None]
